FAERS Safety Report 7984525-8 (Version None)
Quarter: 2011Q4

REPORT INFORMATION
  Report Type: 
  Country: None (occurrence: None)
  Receive Date: 20111216
  Receipt Date: 20111205
  Transmission Date: 20120403
  Serious: Yes (Hospitalization, Other)
  Sender: FDA-Public Use
  Company Number: US-JNJFOC-20111202359

PATIENT
  Sex: Male
  Weight: 86.64 kg

DRUGS (6)
  1. TERAZOSIN HCL [Concomitant]
     Indication: PROSTATIC DISORDER
     Dosage: CONCOMITANT MEDICATIONS STARTED PRIOR TO REMICADE
  2. PRAVASTATIN [Concomitant]
     Indication: BLOOD CHOLESTEROL
     Dosage: CONCOMITANT MEDICATIONS STARTED PRIOR TO REMICADE
  3. ASPIRIN [Concomitant]
     Dosage: CONCOMITANT MEDICATIONS STARTED PRIOR TO REMICADE
  4. REMICADE [Suspect]
     Indication: ARTHRITIS
     Route: 042
     Dates: end: 20111101
  5. FOLIC ACID [Concomitant]
     Dosage: CONCOMITANT MEDICATIONS STARTED PRIOR TO REMICADE
     Route: 048
  6. REMICADE [Suspect]
     Dosage: ON REMICADE FOR AT LEAST 2 YEARS
     Route: 042
     Dates: start: 20090101

REACTIONS (6)
  - HYPERTENSION [None]
  - BOWEL MOVEMENT IRREGULARITY [None]
  - BACK PAIN [None]
  - NEURALGIA [None]
  - THYROID DISORDER [None]
  - NEUROPATHY PERIPHERAL [None]
